FAERS Safety Report 8072427-0 (Version None)
Quarter: 2012Q1

REPORT INFORMATION
  Report Type: 
  Country: None (occurrence: None)
  Receive Date: 20120124
  Receipt Date: 20120124
  Transmission Date: 20120608
  Serious: No
  Sender: FDA-Public Use
  Company Number: None

PATIENT

DRUGS (2)
  1. RITALIN LA [Suspect]
     Dosage: CAPSULE, DELAYED RELEASE 10 MG
  2. RITALIN LA [Suspect]
     Dosage: CAPSULE DELAYED RELEASE 30 MG

REACTIONS (2)
  - MEDICATION ERROR [None]
  - INTERCEPTED DRUG DISPENSING ERROR [None]
